FAERS Safety Report 12836731 (Version 1)
Quarter: 2016Q4

REPORT INFORMATION
  Report Type: Spontaneous
  Country: JP (occurrence: JP)
  Receive Date: 20161011
  Receipt Date: 20161011
  Transmission Date: 20170207
  Serious: Yes (Other)
  Sender: FDA-Public Use
  Company Number: JP-PFIZER INC-2016461003

PATIENT
  Age: 82 Year
  Sex: Male

DRUGS (1)
  1. EFFEXOR [Suspect]
     Active Substance: VENLAFAXINE HYDROCHLORIDE
     Dosage: UNK
     Route: 048
     Dates: start: 20160928, end: 20160930

REACTIONS (6)
  - Hyponatraemia [Recovered/Resolved]
  - Restlessness [Unknown]
  - Amnesia [Unknown]
  - Hallucination [Unknown]
  - Anger [Unknown]
  - Disorientation [Not Recovered/Not Resolved]

NARRATIVE: CASE EVENT DATE: 2016
